FAERS Safety Report 21763861 (Version 3)
Quarter: 2023Q1

REPORT INFORMATION
  Report Type: Spontaneous
  Country: CA (occurrence: CA)
  Receive Date: 20221222
  Receipt Date: 20230113
  Transmission Date: 20230418
  Serious: Yes (Hospitalization, Other)
  Sender: FDA-Public Use
  Company Number: CA-CELLTRION INC.-2021CA018661

PATIENT

DRUGS (8)
  1. INFLECTRA [Suspect]
     Active Substance: INFLIXIMAB-DYYB
     Indication: Crohn^s disease
     Dosage: 500 MG WEEKS, 0,2,6 THEN EVERY 8 WEEKS
     Route: 042
     Dates: start: 20220209, end: 20220915
  2. INFLECTRA [Suspect]
     Active Substance: INFLIXIMAB-DYYB
     Dosage: 500 MG WEEKS, 0,2,6 THEN EVERY 8 WEEKS
     Route: 042
     Dates: start: 20220520
  3. INFLECTRA [Suspect]
     Active Substance: INFLIXIMAB-DYYB
     Dosage: 500 MG WEEKS, 0,2,6 THEN EVERY 8 WEEKS
     Route: 042
     Dates: start: 20220714
  4. INFLECTRA [Suspect]
     Active Substance: INFLIXIMAB-DYYB
     Dosage: 500 MG WEEKS, 0,2,6 THEN EVERY 8 WEEKS
     Route: 042
     Dates: start: 20220915
  5. INFLECTRA [Suspect]
     Active Substance: INFLIXIMAB-DYYB
     Dosage: 800 MG, (SUPPOSED TO RECEIVE 500 MG), EVERY 4 WEEKS
     Route: 042
     Dates: start: 20221109
  6. INFLECTRA [Suspect]
     Active Substance: INFLIXIMAB-DYYB
     Dosage: 800 MG, EVERY 4 WEEK
     Route: 042
     Dates: start: 20221109
  7. INFLECTRA [Suspect]
     Active Substance: INFLIXIMAB-DYYB
     Dosage: 800 MG, EVERY 4 WEEK
     Route: 042
     Dates: start: 20221208
  8. INFLECTRA [Suspect]
     Active Substance: INFLIXIMAB-DYYB
     Dosage: 800 MG, EVERY 4 WEEK
     Route: 042
     Dates: start: 20230103

REACTIONS (25)
  - Streptococcal infection [Recovered/Resolved]
  - Hypersensitivity [Not Recovered/Not Resolved]
  - Ocular discomfort [Not Recovered/Not Resolved]
  - Ocular hyperaemia [Not Recovered/Not Resolved]
  - Eye swelling [Not Recovered/Not Resolved]
  - Oropharyngeal discomfort [Not Recovered/Not Resolved]
  - Erythema [Not Recovered/Not Resolved]
  - Erythema [Not Recovered/Not Resolved]
  - Eye oedema [Not Recovered/Not Resolved]
  - Blister [Unknown]
  - Vision blurred [Not Recovered/Not Resolved]
  - Drug ineffective [Unknown]
  - Off label use [Unknown]
  - Off label use [Unknown]
  - Intentional product use issue [Unknown]
  - Incorrect dose administered [Unknown]
  - COVID-19 [Recovered/Resolved]
  - Mouth ulceration [Unknown]
  - Anal fissure [Unknown]
  - Arthralgia [Not Recovered/Not Resolved]
  - Somnolence [Not Recovered/Not Resolved]
  - Condition aggravated [Not Recovered/Not Resolved]
  - Contraindication to medical treatment [Unknown]
  - Hypertension [Unknown]
  - Heart rate irregular [Unknown]

NARRATIVE: CASE EVENT DATE: 20220101
